FAERS Safety Report 24860727 (Version 1)
Quarter: 2025Q1

REPORT INFORMATION
  Report Type: Spontaneous
  Country: FR (occurrence: FR)
  Receive Date: 20250120
  Receipt Date: 20250120
  Transmission Date: 20250408
  Serious: Yes (Life-Threatening)
  Sender: DR REDDYS
  Company Number: None

PATIENT
  Age: 78 Year
  Sex: Male
  Weight: 47 kg

DRUGS (2)
  1. LENALIDOMIDE [Suspect]
     Active Substance: LENALIDOMIDE
     Indication: Plasma cell myeloma
     Dosage: 21 DAYS OUT OF 28 DAYS
     Route: 048
     Dates: start: 2019, end: 20240730
  2. APIXABAN BIOGARAN [Concomitant]
     Indication: Thrombosis prophylaxis
     Dosage: 2.5MG X2 PER DAY
     Route: 048
     Dates: start: 201907, end: 20240630

REACTIONS (1)
  - Cerebellar stroke [Recovered/Resolved with Sequelae]

NARRATIVE: CASE EVENT DATE: 20240730
